FAERS Safety Report 7435456-3 (Version None)
Quarter: 2011Q2

REPORT INFORMATION
  Report Type: 
  Country: None (occurrence: None)
  Receive Date: 20110425
  Receipt Date: 20110421
  Transmission Date: 20111010
  Serious: Yes (Death, Hospitalization)
  Sender: FDA-Public Use
  Company Number: PHHY2011US33776

PATIENT
  Sex: Female

DRUGS (1)
  1. EXJADE [Suspect]
     Indication: ACUTE MYELOID LEUKAEMIA
     Dosage: 750 MG, QD
     Route: 048

REACTIONS (5)
  - SEPSIS [None]
  - PYREXIA [None]
  - FALL [None]
  - DEATH [None]
  - RESPIRATORY DISORDER [None]
